FAERS Safety Report 16828044 (Version 2)
Quarter: 2019Q3

REPORT INFORMATION
  Report Type: Spontaneous
  Country: US (occurrence: US)
  Receive Date: 20190919
  Receipt Date: 20190930
  Transmission Date: 20191005
  Serious: Yes (Other)
  Sender: FDA-Public Use
  Company Number: US-NAPPMUNDI-USA-2019-0148183

PATIENT
  Sex: Male

DRUGS (2)
  1. OXYCONTIN [Suspect]
     Active Substance: OXYCODONE HYDROCHLORIDE
     Indication: PRODUCT USED FOR UNKNOWN INDICATION
     Dosage: 20 MG, UNK
     Route: 048
  2. OXYCONTIN [Suspect]
     Active Substance: OXYCODONE HYDROCHLORIDE
     Dosage: 3X80 MG, DAILY
     Route: 048

REACTIONS (10)
  - Imprisonment [Recovered/Resolved]
  - Mental disorder [Not Recovered/Not Resolved]
  - Intentional self-injury [Unknown]
  - Disability [Unknown]
  - Amnesia [Unknown]
  - Drug abuse [Recovering/Resolving]
  - Drug dependence [Recovering/Resolving]
  - Anxiety [Unknown]
  - Memory impairment [Unknown]
  - Depression [Unknown]
